FAERS Safety Report 8110136-X (Version None)
Quarter: 2012Q1

REPORT INFORMATION
  Report Type: 
  Country: None (occurrence: None)
  Receive Date: 20120202
  Receipt Date: 20120125
  Transmission Date: 20120608
  Serious: No
  Sender: FDA-Public Use
  Company Number: US-AMGEN-USASP2012005242

PATIENT
  Age: 64 Year
  Sex: Female

DRUGS (1)
  1. ENBREL [Suspect]
     Indication: RHEUMATOID ARTHRITIS
     Dosage: 50 MG, QWK
     Dates: start: 20110203, end: 20120109

REACTIONS (6)
  - TOOTH ABSCESS [None]
  - SWELLING FACE [None]
  - PYREXIA [None]
  - FACIAL PAIN [None]
  - ORAL PAIN [None]
  - TOOTHACHE [None]
